FAERS Safety Report 7598033-X (Version None)
Quarter: 2011Q3

REPORT INFORMATION
  Report Type: 
  Country: None (occurrence: None)
  Receive Date: 20110708
  Receipt Date: 20110628
  Transmission Date: 20111222
  Serious: Yes (Other)
  Sender: FDA-Public Use
  Company Number: BR-MEDIMMUNE-MEDI-0013311

PATIENT
  Sex: Female

DRUGS (4)
  1. CAPTOPRIL [Concomitant]
     Indication: CARDIAC DISORDER
     Dosage: 0.5 TAB DILUTED IN 10ML WATER
     Route: 048
     Dates: start: 20110219
  2. SYNAGIS [Suspect]
     Indication: CARDIAC DISORDER
     Route: 030
     Dates: start: 20100428, end: 20100428
  3. PROTOVIT [Concomitant]
     Indication: CARDIAC DISORDER
     Route: 048
     Dates: start: 20110219
  4. PROPRANOLOL HCL [Concomitant]
     Indication: CARDIAC DISORDER
     Dosage: 10MG DILUTED IN 10ML WATER
     Route: 048
     Dates: start: 20100204, end: 20110211

REACTIONS (8)
  - FEEDING DISORDER OF INFANCY OR EARLY CHILDHOOD [None]
  - PYREXIA [None]
  - CARDIAC FAILURE [None]
  - NAUSEA [None]
  - DIARRHOEA [None]
  - RHINORRHOEA [None]
  - INFLUENZA [None]
  - COUGH [None]
